FAERS Safety Report 20598317 (Version 4)
Quarter: 2022Q2

REPORT INFORMATION
  Report Type: Spontaneous
  Country: US (occurrence: US)
  Receive Date: 20220315
  Receipt Date: 20220422
  Transmission Date: 20220721
  Serious: No
  Sender: FDA-Public Use
  Company Number: US-PFIZER INC-202200379294

PATIENT
  Age: 59 Year
  Sex: Female

DRUGS (2)
  1. PRISTIQ EXTENDED-RELEASE [Suspect]
     Active Substance: DESVENLAFAXINE SUCCINATE
     Indication: Depression
     Dosage: UNK
  2. PRISTIQ EXTENDED-RELEASE [Suspect]
     Active Substance: DESVENLAFAXINE SUCCINATE
     Dosage: 100 MG, 1X/DAY (QUANTITY: 90)
     Route: 048

REACTIONS (6)
  - Visual impairment [Unknown]
  - Intentional product misuse [Unknown]
  - Hypersomnia [Unknown]
  - Amnesia [Unknown]
  - Hearing aid user [Unknown]
  - Distractibility [Unknown]

NARRATIVE: CASE EVENT DATE: 20150101
